FAERS Safety Report 4575999-3 (Version None)
Quarter: 2005Q1

REPORT INFORMATION
  Report Type: 
  Country: None (occurrence: None)
  Receive Date: 20050209
  Receipt Date: 20050128
  Transmission Date: 20050727
  Serious: Yes (Death)
  Sender: FDA-Public Use
  Company Number: PH-ROCHE-393803

PATIENT
  Age: 24 Year
  Sex: Female

DRUGS (2)
  1. TORADOL [Suspect]
     Indication: HEADACHE
     Route: 030
     Dates: start: 20050106, end: 20050106
  2. PARACETAMOL/TRAMADOL [Concomitant]

REACTIONS (1)
  - DEATH [None]
